FAERS Safety Report 7140945-5 (Version None)
Quarter: 2010Q4

REPORT INFORMATION
  Report Type: 
  Country: None (occurrence: None)
  Receive Date: 20101201
  Receipt Date: 20101201
  Transmission Date: 20110411
  Serious: Yes (Other)
  Sender: FDA-Public Use
  Company Number: None

PATIENT
  Age: 26 Year
  Sex: Female
  Weight: 74.8435 kg

DRUGS (5)
  1. OXYCONTIN [Suspect]
     Indication: PAIN
     Dosage: ONE 20 MG TABLET EVERY 12 HOURS PO
     Route: 048
     Dates: start: 20101031, end: 20101123
  2. OXYCONTIN [Suspect]
     Indication: ROAD TRAFFIC ACCIDENT
     Dosage: ONE 20 MG TABLET EVERY 12 HOURS PO
     Route: 048
     Dates: start: 20101031, end: 20101123
  3. PERCOCET [Concomitant]
  4. OTC ADVIL [Concomitant]
  5. FLEXERIL [Concomitant]

REACTIONS (8)
  - ABDOMINAL PAIN UPPER [None]
  - ACTIVITIES OF DAILY LIVING IMPAIRED [None]
  - BACK DISORDER [None]
  - BACK INJURY [None]
  - IMPAIRED WORK ABILITY [None]
  - MEDICATION RESIDUE [None]
  - PRODUCT QUALITY ISSUE [None]
  - WITHDRAWAL SYNDROME [None]
